FAERS Safety Report 15829184 (Version 1)
Quarter: 2019Q1

REPORT INFORMATION
  Report Type: Spontaneous
  Country: US (occurrence: US)
  Receive Date: 20190115
  Receipt Date: 20190115
  Transmission Date: 20190417
  Serious: No
  Sender: FDA-Public Use
  Company Number: US-ALLERGAN-1854328US

PATIENT
  Sex: Female
  Weight: 88.44 kg

DRUGS (2)
  1. RESTASIS [Suspect]
     Active Substance: CYCLOSPORINE
     Indication: PRODUCT USED FOR UNKNOWN INDICATION
     Dosage: UNKNOWN
     Route: 047
  2. UNSPECIFIED INJECTION/ANTIBIOTIC [Concomitant]
     Indication: RETINAL DETACHMENT

REACTIONS (1)
  - Eye pain [Recovered/Resolved]
